FAERS Safety Report 6822848-6 (Version None)
Quarter: 2010Q3

REPORT INFORMATION
  Report Type: 
  Country: None (occurrence: None)
  Receive Date: 20100708
  Receipt Date: 20100628
  Transmission Date: 20110219
  Serious: Yes (Other)
  Sender: FDA-Public Use
  Company Number: US-JNJFOC-20100700159

PATIENT
  Sex: Female
  Weight: 77.11 kg

DRUGS (4)
  1. REMICADE [Suspect]
     Indication: COLITIS ULCERATIVE
     Route: 042
  2. PROTONIX [Concomitant]
     Indication: GASTROOESOPHAGEAL REFLUX DISEASE
     Route: 065
  3. MIRALAX [Concomitant]
     Indication: CONSTIPATION
     Route: 065
  4. VISTARIL [Concomitant]
     Indication: CYSTITIS INTERSTITIAL
     Route: 065

REACTIONS (2)
  - BONE NEOPLASM [None]
  - EYE INFECTION [None]
